FAERS Safety Report 25827829 (Version 1)
Quarter: 2025Q3

REPORT INFORMATION
  Report Type: Other
  Country: US (occurrence: US)
  Receive Date: 20250921
  Receipt Date: 20250921
  Transmission Date: 20251021
  Serious: No
  Sender: TRAVERE THERAPEUTICS
  Company Number: US-TRAVERE-2025TVT01282

PATIENT
  Age: 55 Year
  Sex: Male

DRUGS (2)
  1. FILSPARI [Suspect]
     Active Substance: SPARSENTAN
     Indication: IgA nephropathy
     Route: 048
     Dates: start: 20250630
  2. FILSPARI [Suspect]
     Active Substance: SPARSENTAN
     Route: 048
     Dates: start: 20250714

REACTIONS (4)
  - Chromaturia [Unknown]
  - Ligament sprain [Unknown]
  - Feeding disorder [Unknown]
  - Illness [Unknown]

NARRATIVE: CASE EVENT DATE: 20250701
